FAERS Safety Report 5414202-9 (Version None)
Quarter: 2007Q3

REPORT INFORMATION
  Report Type: 
  Country: None (occurrence: None)
  Receive Date: 20070814
  Receipt Date: 20070808
  Transmission Date: 20080115
  Serious: Yes (Hospitalization)
  Sender: FDA-Public Use
  Company Number: GB-PFIZER INC-2007066310

PATIENT
  Age: 67 Year
  Sex: Female

DRUGS (10)
  1. ADRIAMYCIN PFS [Suspect]
     Indication: HODGKIN'S DISEASE
  2. PREDNISOLONE [Suspect]
     Indication: HODGKIN'S DISEASE
  3. CYCLOPHOSPHAMIDE [Suspect]
     Indication: HODGKIN'S DISEASE
  4. CYTARABINE [Suspect]
     Indication: HODGKIN'S DISEASE
  5. METHOTREXATE [Suspect]
     Indication: HODGKIN'S DISEASE
  6. CISPLATIN [Suspect]
  7. VINCRISTINE SULFATE [Suspect]
  8. BLEOMYCIN [Suspect]
     Indication: HODGKIN'S DISEASE
  9. DEXAMETHASONE 0.5MG TAB [Suspect]
  10. PROCARBAZINE HYDROCHLORIDE [Suspect]

REACTIONS (7)
  - COORDINATION ABNORMAL [None]
  - FEBRILE NEUTROPENIA [None]
  - GAIT DISTURBANCE [None]
  - HEADACHE [None]
  - PARAESTHESIA [None]
  - PARAPARESIS [None]
  - SPINAL ANAESTHESIA [None]
